FAERS Safety Report 4377249-X (Version None)
Quarter: 2004Q2

REPORT INFORMATION
  Report Type: 
  Country: None (occurrence: None)
  Receive Date: 20040609
  Receipt Date: 20040323
  Transmission Date: 20050107
  Serious: No
  Sender: FDA-Public Use
  Company Number: 2004205455US

PATIENT
  Age: 54 Year
  Sex: Male

DRUGS (1)
  1. BEXTRA [Suspect]
     Indication: PLANTAR FASCIITIS
     Dosage: 20 MG, QD
     Dates: start: 20030201, end: 20030301

REACTIONS (1)
  - SURGERY [None]
